FAERS Safety Report 9426595 (Version 1)
Quarter: 2013Q3

REPORT INFORMATION
  Report Type: Spontaneous
  Country: US (occurrence: US)
  Receive Date: 20130730
  Receipt Date: 20130730
  Transmission Date: 20140515
  Serious: No
  Sender: FDA-Public Use
  Company Number: US-PFIZER INC-2013218725

PATIENT
  Age: 60 Year
  Sex: Female
  Weight: 78.91 kg

DRUGS (4)
  1. CALAN SR [Suspect]
     Indication: HYPERTENSION
     Dosage: 240 MG, 1X/DAY
     Route: 048
  2. ZOLOFT [Suspect]
     Indication: DEPRESSION
     Dosage: 50 MG, 1X/DAY
     Route: 048
  3. CLOPIDOGREL [Concomitant]
     Dosage: UNK
  4. CAPTOPRIL [Concomitant]
     Indication: HYPERTENSION
     Dosage: UNK

REACTIONS (1)
  - Nasopharyngitis [Unknown]
